FAERS Safety Report 4603752-0 (Version None)
Quarter: 2005Q1

REPORT INFORMATION
  Report Type: 
  Country: None (occurrence: None)
  Receive Date: 20050308
  Receipt Date: 20041104
  Transmission Date: 20050727
  Serious: Yes (Hospitalization, Other)
  Sender: FDA-Public Use
  Company Number: 2004106836

PATIENT
  Age: 58 Year
  Sex: Male
  Weight: 86.1834 kg

DRUGS (8)
  1. BEXTRA [Suspect]
     Indication: PAIN
     Dosage: 10 MG (10 MG, 1 IN 1 D), ORAL
     Route: 048
     Dates: start: 20041001, end: 20041103
  2. VICODIN [Concomitant]
  3. TEMAZEPAM [Concomitant]
  4. INSULIN [Concomitant]
  5. ATENOLOL [Concomitant]
  6. LISINOPRIL [Concomitant]
  7. PROPRANOLOL HYDROCHLORIDE [Concomitant]
  8. CLOPIDOGREL BISULFATE [Concomitant]

REACTIONS (10)
  - CARDIAC DISORDER [None]
  - CHEST PAIN [None]
  - CONDITION AGGRAVATED [None]
  - DIZZINESS [None]
  - DYSPNOEA [None]
  - PAIN [None]
  - PRURITUS [None]
  - RASH PRURITIC [None]
  - SKIN IRRITATION [None]
  - TREATMENT NONCOMPLIANCE [None]
